FAERS Safety Report 5186390-3 (Version None)
Quarter: 2006Q4

REPORT INFORMATION
  Report Type: 
  Country: None (occurrence: None)
  Receive Date: 20061220
  Receipt Date: 20061115
  Transmission Date: 20070319
  Serious: Yes (Hospitalization)
  Sender: FDA-Public Use
  Company Number: DE-SHR-DE-2006-035591

PATIENT
  Age: 61 Year
  Sex: Male

DRUGS (2)
  1. BETASERON [Suspect]
     Indication: MULTIPLE SCLEROSIS
     Dosage: 1 AMP, UNK
     Route: 058
     Dates: start: 20060714
  2. LEBIC [Concomitant]
     Dosage: 25 MG, 3X/DAY
     Route: 048
     Dates: start: 20060111

REACTIONS (4)
  - ABDOMINAL PAIN LOWER [None]
  - MUSCLE SPASMS [None]
  - MUSCULOSKELETAL STIFFNESS [None]
  - PYREXIA [None]
